FAERS Safety Report 7561416-8 (Version None)
Quarter: 2011Q2

REPORT INFORMATION
  Report Type: 
  Country: None (occurrence: None)
  Receive Date: 20110621
  Receipt Date: 20101004
  Transmission Date: 20111010
  Serious: No
  Sender: FDA-Public Use
  Company Number: US-ASTRAZENECA-2010SE46617

PATIENT
  Age: 73 Year
  Sex: Female
  Weight: 67.6 kg

DRUGS (2)
  1. PULMICORT [Suspect]
     Route: 045
     Dates: start: 20100930
  2. ALBUTEROL SULFATE AUTOHALER [Concomitant]

REACTIONS (3)
  - CHEST DISCOMFORT [None]
  - DYSPNOEA [None]
  - DRUG ADMINISTRATION ERROR [None]
